FAERS Safety Report 16056902 (Version 1)
Quarter: 2019Q1

REPORT INFORMATION
  Report Type: Spontaneous
  Country: US (occurrence: US)
  Receive Date: 20190311
  Receipt Date: 20190311
  Transmission Date: 20190418
  Serious: Yes (Hospitalization, Other)
  Sender: FDA-Public Use
  Company Number: US-ALLERGAN-1829806US

PATIENT
  Age: 49 Year
  Sex: Female

DRUGS (7)
  1. AVYCAZ [Suspect]
     Active Substance: AVIBACTAM SODIUM\CEFTAZIDIME
     Indication: URINARY TRACT INFECTION
     Dosage: 2.5 G, Q8HR
     Route: 042
     Dates: start: 20180601, end: 20180601
  2. AVYCAZ [Suspect]
     Active Substance: AVIBACTAM SODIUM\CEFTAZIDIME
     Dosage: 2.5 G, Q8HR
     Route: 042
     Dates: start: 20180602, end: 20180602
  3. TOPAMAX [Concomitant]
     Active Substance: TOPIRAMATE
     Indication: PRODUCT USED FOR UNKNOWN INDICATION
     Dosage: UNK
     Route: 065
  4. AMIKACIN. [Concomitant]
     Active Substance: AMIKACIN
     Indication: URINARY TRACT INFECTION
     Dosage: 500 MG, UNK
     Route: 065
     Dates: start: 20180601, end: 20180601
  5. AVYCAZ [Suspect]
     Active Substance: AVIBACTAM SODIUM\CEFTAZIDIME
     Dosage: 2.5 G, Q8HR
     Route: 042
     Dates: start: 20180602, end: 20180602
  6. AMIKACIN. [Concomitant]
     Active Substance: AMIKACIN
     Dosage: 400 MG, UNK
     Route: 065
     Dates: start: 20180601, end: 20180601
  7. AVYCAZ [Suspect]
     Active Substance: AVIBACTAM SODIUM\CEFTAZIDIME
     Dosage: 2.5 G, Q8HR
     Route: 042
     Dates: start: 20180601, end: 20180601

REACTIONS (1)
  - Seizure [Recovering/Resolving]

NARRATIVE: CASE EVENT DATE: 20180601
